FAERS Safety Report 4908990-5 (Version None)
Quarter: 2006Q1

REPORT INFORMATION
  Report Type: 
  Country: None (occurrence: None)
  Receive Date: 20060210
  Receipt Date: 20060210
  Transmission Date: 20060701
  Serious: Yes (Hospitalization)
  Sender: FDA-Public Use
  Company Number: None

PATIENT
  Sex: Female

DRUGS (5)
  1. OMNIPAQUE 300 [Suspect]
     Indication: ANGIOGRAM
     Dates: start: 20060112, end: 20060112
  2. OMNIPAQUE 300 [Suspect]
  3. FENTANYL [Concomitant]
  4. VALIUM [Concomitant]
  5. XYLOCAINE [Concomitant]

REACTIONS (12)
  - BLOOD PRESSURE SYSTOLIC INCREASED [None]
  - CSF GLUCOSE INCREASED [None]
  - CSF PROTEIN INCREASED [None]
  - DYSTONIA [None]
  - ELECTROENCEPHALOGRAM ABNORMAL [None]
  - EYE MOVEMENT DISORDER [None]
  - HEART RATE INCREASED [None]
  - HEMIPARESIS [None]
  - NUCLEAR MAGNETIC RESONANCE IMAGING BRAIN ABNORMAL [None]
  - POSTURE ABNORMAL [None]
  - PROCEDURAL COMPLICATION [None]
  - SPEECH DISORDER [None]
